FAERS Safety Report 8332556 (Version 3)
Quarter: 2012Q4

REPORT INFORMATION
  Report Type: 
  Country: US (occurrence: US)
  Receive Date: 20120111
  Receipt Date: 20120904
  Transmission Date: 20130627
  Serious: No
  Sender: FDA-Public Use
  Company Number: US-AMGEN-USASP2011068236

PATIENT
  Age: 64 Year
  Sex: Male
  Weight: 95.69 kg

DRUGS (5)
  1. ENBREL [Suspect]
     Indication: PSORIATIC ARTHROPATHY
     Dosage: 50 mg, qwk
     Route: 058
     Dates: start: 201009, end: 20101220
  2. ZOCOR [Concomitant]
     Dosage: UNK
     Route: 048
  3. CALCIUM +VIT D [Concomitant]
     Dosage: UNK
     Route: 048
  4. ASPIRIN [Concomitant]
     Dosage: UNK
     Route: 048
  5. FISH OIL [Concomitant]
     Dosage: UNK
     Route: 048

REACTIONS (4)
  - Skin swelling [Recovered/Resolved]
  - Skin exfoliation [Not Recovered/Not Resolved]
  - Rash erythematous [Recovered/Resolved]
  - Pruritus [Not Recovered/Not Resolved]
